FAERS Safety Report 10689534 (Version 4)
Quarter: 2015Q2

REPORT INFORMATION
  Report Type: Spontaneous
  Country: US (occurrence: US)
  Receive Date: 20150105
  Receipt Date: 20150428
  Transmission Date: 20150821
  Serious: No
  Sender: FDA-Public Use
  Company Number: US-PFIZER INC-2014358647

PATIENT
  Sex: Male

DRUGS (1)
  1. ESTRING [Suspect]
     Active Substance: ESTRADIOL
     Indication: VULVOVAGINAL DRYNESS
     Dosage: UNK, EVERY 3 MONTHS
     Dates: start: 201408, end: 201411

REACTIONS (2)
  - Exposure via partner [Recovered/Resolved]
  - Genital discomfort [Recovered/Resolved]
